FAERS Safety Report 6534988-X (Version None)
Quarter: 2010Q1

REPORT INFORMATION
  Report Type: 
  Country: None (occurrence: None)
  Receive Date: 20100111
  Receipt Date: 20100111
  Transmission Date: 20100710
  Serious: Yes (Hospitalization)
  Sender: FDA-Public Use
  Company Number: None

PATIENT
  Sex: Female
  Weight: 72.7 kg

DRUGS (6)
  1. NAVELBINE [Suspect]
     Indication: BREAST CANCER
     Dosage: 34MG ON DAY 1, 8 AND 15/CYC  IV
     Route: 042
     Dates: start: 20100104
  2. SORAFENIB 200MG TABLETS [Suspect]
     Indication: BREAST CANCER
     Dosage: 200MG PO BID DAILY
     Route: 048
  3. DILAUDID [Concomitant]
  4. MS CONTIN [Concomitant]
  5. SYNTHROID [Concomitant]
  6. STOOL SOFTENER [Concomitant]

REACTIONS (2)
  - CHEST PAIN [None]
  - MYOCARDIAL INFARCTION [None]
